FAERS Safety Report 7283078-X (Version None)
Quarter: 2011Q1

REPORT INFORMATION
  Report Type: 
  Country: None (occurrence: None)
  Receive Date: 20110204
  Receipt Date: 20110204
  Transmission Date: 20110831
  Serious: Yes (Life-Threatening, Hospitalization, Disabling)
  Sender: FDA-Public Use
  Company Number: None

PATIENT
  Sex: Male
  Weight: 79.8331 kg

DRUGS (2)
  1. ASPIRIN [Suspect]
     Dosage: 2 ASPIRIN SURGERY
  2. PLAVIX [Suspect]
     Dosage: 6 PLAVIX 75 MG EA 7 HOURS BEFORE SURGERY
     Dates: start: 20090624

REACTIONS (6)
  - SURGICAL FAILURE [None]
  - CEREBRAL HAEMORRHAGE [None]
  - SUBDURAL HAEMATOMA [None]
  - MYOCARDIAL INFARCTION [None]
  - CONVULSION [None]
  - CARDIAC DISORDER [None]
